FAERS Safety Report 8667722 (Version 3)
Quarter: 2014Q2

REPORT INFORMATION
  Report Type: Spontaneous
  Country: US (occurrence: US)
  Receive Date: 20120717
  Receipt Date: 20131017
  Transmission Date: 20141212
  Serious: Yes (Other)
  Sender: FDA-Public Use
  Company Number: US-PFIZER INC-2012168221

PATIENT
  Age: 42 Year
  Sex: Female

DRUGS (1)
  1. DILANTIN [Suspect]
     Indication: CONVULSION
     Dosage: 200 MG, 2X/DAY (100 MG, 2 CAPSULES TWICE A DAY)
     Route: 048

REACTIONS (4)
  - Anticonvulsant drug level decreased [Recovered/Resolved]
  - Convulsion [Unknown]
  - Road traffic accident [Recovered/Resolved]
  - Impaired work ability [Unknown]
